FAERS Safety Report 8911859 (Version 3)
Quarter: 2012Q4

REPORT INFORMATION
  Report Type: 
  Country: US (occurrence: US)
  Receive Date: 20121116
  Receipt Date: 20121128
  Transmission Date: 20130627
  Serious: Yes (Other)
  Sender: FDA-Public Use
  Company Number: US-JNJFOC-20121105677

PATIENT
  Age: 17 Year

DRUGS (2)
  1. REMICADE [Suspect]
     Indication: CROHN^S DISEASE
     Dosage: had ^about^ 3 infusions on unspecified dates
     Route: 042
  2. HUMIRA [Suspect]
     Indication: CROHN^S DISEASE
     Dosage: had a few doses on unspecified dates

REACTIONS (2)
  - Thyroid cancer [Unknown]
  - Intestinal resection [Unknown]
